FAERS Safety Report 4745035-4 (Version None)
Quarter: 2005Q3

REPORT INFORMATION
  Report Type: 
  Country: None (occurrence: None)
  Receive Date: 20050812
  Receipt Date: 20050803
  Transmission Date: 20060218
  Serious: Yes (Death)
  Sender: FDA-Public Use
  Company Number: 2005109070

PATIENT
  Sex: Female

DRUGS (2)
  1. AROMASIN [Suspect]
     Indication: BREAST CANCER
     Dosage: 25 MG (25 MG, DAILY), ORAL
     Route: 048
     Dates: start: 20040401, end: 20050601
  2. MEDROXYPROGESTERONE [Suspect]
     Indication: BREAST CANCER
     Dates: start: 20040401, end: 20050601

REACTIONS (2)
  - METASTASES TO BONE [None]
  - METASTASIS [None]
